FAERS Safety Report 24534620 (Version 2)
Quarter: 2024Q4

REPORT INFORMATION
  Report Type: Spontaneous
  Country: US (occurrence: US)
  Receive Date: 20241022
  Receipt Date: 20241227
  Transmission Date: 20250115
  Serious: No
  Sender: GRANULES PHARMACEUTICALS INC
  Company Number: US-GRANULES-US-2024GRASPO00483

PATIENT
  Sex: Female

DRUGS (2)
  1. METOPROLOL SUCCINATE [Suspect]
     Active Substance: METOPROLOL SUCCINATE
     Indication: Heart rate increased
     Route: 048
     Dates: start: 20240923
  2. ELIQUIS [Concomitant]
     Active Substance: APIXABAN
     Indication: Product used for unknown indication
     Route: 065

REACTIONS (11)
  - Heart rate increased [Unknown]
  - Swelling [Unknown]
  - Weight increased [Unknown]
  - Joint swelling [Unknown]
  - Swelling face [Unknown]
  - Abdominal distension [Unknown]
  - Malaise [Unknown]
  - Diarrhoea [Unknown]
  - Peripheral swelling [Unknown]
  - Fatigue [Unknown]
  - Product use in unapproved indication [Unknown]
